FAERS Safety Report 23495188 (Version 1)
Quarter: 2024Q1

REPORT INFORMATION
  Report Type: Spontaneous
  Country: CN (occurrence: None)
  Receive Date: 20240207
  Receipt Date: 20240207
  Transmission Date: 20240410
  Serious: Yes (Other)
  Sender: FDA-Public Use
  Company Number: 2024A026940

PATIENT
  Age: 30455 Day
  Sex: Female

DRUGS (9)
  1. FASLODEX [Suspect]
     Active Substance: FULVESTRANT
     Indication: Breast cancer female
     Route: 030
     Dates: start: 20230303, end: 20230303
  2. FASLODEX [Suspect]
     Active Substance: FULVESTRANT
     Indication: Metastases to lung
     Route: 030
     Dates: start: 20230303, end: 20230303
  3. FASLODEX [Suspect]
     Active Substance: FULVESTRANT
     Indication: Metastases to bone
     Route: 030
     Dates: start: 20230303, end: 20230303
  4. FASLODEX [Suspect]
     Active Substance: FULVESTRANT
     Indication: Breast cancer female
     Route: 030
     Dates: start: 20230318
  5. FASLODEX [Suspect]
     Active Substance: FULVESTRANT
     Indication: Metastases to lung
     Route: 030
     Dates: start: 20230318
  6. FASLODEX [Suspect]
     Active Substance: FULVESTRANT
     Indication: Metastases to bone
     Route: 030
     Dates: start: 20230318
  7. FASLODEX [Suspect]
     Active Substance: FULVESTRANT
     Indication: Breast cancer female
     Route: 030
     Dates: start: 20230401
  8. FASLODEX [Suspect]
     Active Substance: FULVESTRANT
     Indication: Metastases to lung
     Route: 030
     Dates: start: 20230401
  9. FASLODEX [Suspect]
     Active Substance: FULVESTRANT
     Indication: Metastases to bone
     Route: 030
     Dates: start: 20230401

REACTIONS (1)
  - Myelosuppression [Recovering/Resolving]

NARRATIVE: CASE EVENT DATE: 20230427
